FAERS Safety Report 10193034 (Version 1)
Quarter: 2014Q2

REPORT INFORMATION
  Report Type: Spontaneous
  Country: US (occurrence: US)
  Receive Date: 20140524
  Receipt Date: 20140524
  Transmission Date: 20141212
  Serious: Yes (Hospitalization, Other)
  Sender: FDA-Public Use
  Company Number: US-AMGEN INC.-USASP2014036797

PATIENT
  Age: 65 Year
  Sex: Female

DRUGS (18)
  1. PROLIA [Suspect]
     Indication: PRODUCT USED FOR UNKNOWN INDICATION
     Dosage: UNK
     Route: 065
     Dates: start: 201309
  2. NOVOLOG [Concomitant]
  3. HUMALOG [Concomitant]
  4. LEVEMIR [Concomitant]
  5. PROCHLORPERAZINE [Concomitant]
  6. ZOCOR [Concomitant]
  7. NABUMETONE [Concomitant]
  8. DETROL [Concomitant]
  9. ESTRADIOL [Concomitant]
  10. PRAMIPEXOLE [Concomitant]
  11. SPIRONOLACTONE [Concomitant]
  12. FUROSEMIDE [Concomitant]
  13. POTASSIUM [Concomitant]
  14. SINGULAIR [Concomitant]
  15. CALCIUM WITH VITAMIN D             /00944201/ [Concomitant]
     Dosage: 1600 MG, UNK
  16. PATANASE [Concomitant]
  17. SYMBICORT [Concomitant]
  18. ALBUTEROL                          /00139501/ [Concomitant]

REACTIONS (13)
  - Dyspnoea [Unknown]
  - Spinal disorder [Unknown]
  - Induration [Unknown]
  - Bone erosion [Unknown]
  - Arthritis [Unknown]
  - Bone disorder [Unknown]
  - Back pain [Not Recovered/Not Resolved]
  - Arthralgia [Not Recovered/Not Resolved]
  - Pruritus [Unknown]
  - Urticaria [Unknown]
  - Fall [Unknown]
  - Pain [Not Recovered/Not Resolved]
  - Muscle strain [Unknown]
